FAERS Safety Report 21203137 (Version 1)
Quarter: 2022Q3

REPORT INFORMATION
  Report Type: Other
  Country: SA (occurrence: None)
  Receive Date: 20220811
  Receipt Date: 20220811
  Transmission Date: 20221026
  Serious: Yes (Hospitalization)
  Sender: FDA-Public Use
  Company Number: SA-ROCHE-3156256

PATIENT
  Age: 25 Year
  Sex: Female

DRUGS (5)
  1. RITUXIMAB [Suspect]
     Active Substance: RITUXIMAB
     Indication: Antisynthetase syndrome
     Dosage: EVERY 2 WEEKS FOR 1 MONTH,
     Route: 042
  2. RITUXIMAB [Suspect]
     Active Substance: RITUXIMAB
     Indication: Interstitial lung disease
     Route: 042
  3. AZATHIOPRINE [Concomitant]
     Active Substance: AZATHIOPRINE
     Indication: Antisynthetase syndrome
     Route: 048
  4. AZATHIOPRINE [Concomitant]
     Active Substance: AZATHIOPRINE
     Indication: Interstitial lung disease
     Route: 048
  5. DINOPROSTONE [Concomitant]
     Active Substance: DINOPROSTONE
     Indication: Induced labour
     Route: 067

REACTIONS (3)
  - Oligohydramnios [Unknown]
  - Haemoglobin decreased [Unknown]
  - Maternal exposure before pregnancy [Unknown]
